FAERS Safety Report 9743294 (Version 3)
Quarter: 2015Q3

REPORT INFORMATION
  Report Type: Spontaneous
  Country: US (occurrence: US)
  Receive Date: 20131210
  Receipt Date: 20150805
  Transmission Date: 20151125
  Serious: Yes (Other)
  Sender: FDA-Public Use
  Company Number: US-GILEAD-2009-0026008

PATIENT
  Age: 58 Year
  Sex: Male
  Weight: 74.1 kg

DRUGS (23)
  1. LETAIRIS [Suspect]
     Active Substance: AMBRISENTAN
     Indication: PULMONARY ARTERIAL HYPERTENSION
     Route: 048
     Dates: start: 20091023, end: 20091214
  2. CARDIZEM [Concomitant]
     Active Substance: DILTIAZEM HYDROCHLORIDE
  3. LIPITOR [Concomitant]
     Active Substance: ATORVASTATIN CALCIUM
  4. LYRICA [Concomitant]
     Active Substance: PREGABALIN
  5. LORTAB [Concomitant]
     Active Substance: ACETAMINOPHEN\HYDROCODONE BITARTRATE
  6. FLEXERIL [Concomitant]
     Active Substance: CYCLOBENZAPRINE HYDROCHLORIDE
  7. OMEGA-3 ACIDS [Concomitant]
     Active Substance: OMEGA-3 FATTY ACIDS
  8. COENZYME Q10 [Concomitant]
     Active Substance: UBIDECARENONE
  9. VITAMIN E [Concomitant]
     Active Substance: .ALPHA.-TOCOPHEROL
  10. SPIRIVA [Concomitant]
     Active Substance: TIOTROPIUM BROMIDE MONOHYDRATE
  11. CELEBREX [Concomitant]
     Active Substance: CELECOXIB
  12. SUPER B COMPLEX [Concomitant]
     Active Substance: CYANOCOBALAMIN\DEXPANTHENOL\NIACINAMIDE\PYRIDOXINE HYDROCHLORIDE\RIBOFLAVIN 5^-PHOSPHATE SODIUM\THIAMINE HYDROCHLORIDE\VITAMIN B COMPLEX
  13. PLAVIX [Concomitant]
     Active Substance: CLOPIDOGREL BISULFATE
  14. ALBUTEROL. [Concomitant]
     Active Substance: ALBUTEROL
  15. TYLENOL PM [Concomitant]
     Active Substance: ACETAMINOPHEN\DIPHENHYDRAMINE
  16. APRISO [Concomitant]
     Active Substance: MESALAMINE
  17. SONATA [Concomitant]
     Active Substance: ZALEPLON
  18. CENTRUM MULTIVITAMIN [Concomitant]
  19. VITAMIN C/VITAMIN E [Concomitant]
  20. ADVAIR DISKUS [Concomitant]
     Active Substance: FLUTICASONE PROPIONATE\SALMETEROL XINAFOATE
  21. VITAMIN B12 [Concomitant]
     Active Substance: CYANOCOBALAMIN
  22. TETRACYCLINE [Concomitant]
     Active Substance: TETRACYCLINE
  23. NEXIUM [Concomitant]
     Active Substance: ESOMEPRAZOLE MAGNESIUM

REACTIONS (1)
  - Drug ineffective [Recovering/Resolving]
